FAERS Safety Report 8033524-9 (Version None)
Quarter: 2012Q1

REPORT INFORMATION
  Report Type: 
  Country: None (occurrence: None)
  Receive Date: 20120110
  Receipt Date: 20120106
  Transmission Date: 20120608
  Serious: Yes (Death, Hospitalization)
  Sender: FDA-Public Use
  Company Number: JP-JNJFOC-20100508051

PATIENT
  Sex: Female

DRUGS (12)
  1. LORAZEPAM [Suspect]
     Indication: PRODUCT USED FOR UNKNOWN INDICATION
     Route: 048
     Dates: start: 20080731
  2. LITHIUM CARBONATE [Concomitant]
     Route: 048
     Dates: start: 20100208, end: 20100307
  3. RISPERDAL CONSTA [Suspect]
     Indication: SCHIZOPHRENIA
     Route: 030
     Dates: start: 20091210, end: 20100106
  4. RISPERDAL [Suspect]
     Route: 048
     Dates: start: 20091028, end: 20091110
  5. RISPERDAL [Suspect]
     Route: 048
     Dates: start: 20080731, end: 20091022
  6. LITHIUM CARBONATE [Concomitant]
     Route: 048
     Dates: start: 20100122, end: 20100207
  7. LITHIUM CARBONATE [Concomitant]
     Route: 048
     Dates: start: 20100308, end: 20100414
  8. RISPERDAL [Suspect]
     Route: 048
     Dates: start: 20091023, end: 20091027
  9. LITHIUM CARBONATE [Concomitant]
     Route: 048
     Dates: start: 20091118, end: 20100121
  10. RISPERDAL [Suspect]
     Indication: SCHIZOPHRENIA
     Route: 048
     Dates: start: 20091203
  11. RISPERDAL CONSTA [Suspect]
     Route: 030
     Dates: start: 20100107
  12. RISPERDAL CONSTA [Suspect]
     Route: 030
     Dates: start: 20091002, end: 20091209

REACTIONS (3)
  - MYOCARDIAL INFARCTION [None]
  - PSYCHIATRIC SYMPTOM [None]
  - WEIGHT INCREASED [None]
